FAERS Safety Report 17976917 (Version 3)
Quarter: 2020Q4

REPORT INFORMATION
  Report Type: Spontaneous
  Country: JP (occurrence: JP)
  Receive Date: 20200703
  Receipt Date: 20201223
  Transmission Date: 20210113
  Serious: Yes (Hospitalization, Other)
  Sender: FDA-Public Use
  Company Number: JP-AMGEN-JPNSP2020106300

PATIENT
  Age: 48 Year
  Sex: Female

DRUGS (66)
  1. DOCETAXEL. [Suspect]
     Active Substance: DOCETAXEL
     Indication: BREAST CANCER FEMALE
     Dosage: 120 MILLIGRAM
     Route: 041
     Dates: start: 20191225, end: 20191225
  2. DOCETAXEL. [Suspect]
     Active Substance: DOCETAXEL
     Dosage: 120 MILLIGRAM
     Route: 041
     Dates: start: 20200212, end: 20200212
  3. DOCETAXEL. [Suspect]
     Active Substance: DOCETAXEL
     Dosage: 120 MILLIGRAM
     Route: 041
     Dates: start: 20200311, end: 20200311
  4. TRASTUZUMAB. [Concomitant]
     Active Substance: TRASTUZUMAB
     Dosage: 556 MILLIGRAM
     Route: 041
     Dates: start: 20200115, end: 20200115
  5. TRASTUZUMAB. [Concomitant]
     Active Substance: TRASTUZUMAB
     Dosage: 556 MILLIGRAM
     Route: 041
     Dates: start: 20200513, end: 20200513
  6. PERJETA [Concomitant]
     Active Substance: PERTUZUMAB
     Dosage: 420 MILLIGRAM
     Route: 041
     Dates: start: 20200115, end: 20200115
  7. PERJETA [Concomitant]
     Active Substance: PERTUZUMAB
     Dosage: 420 MILLIGRAM
     Route: 041
     Dates: start: 20200311, end: 20200311
  8. POLARAMINE [Concomitant]
     Active Substance: DEXCHLORPHENIRAMINE MALEATE
     Indication: PRODUCT USED FOR UNKNOWN INDICATION
     Dosage: 5 MILLIGRAM
     Route: 041
     Dates: start: 20191225, end: 20191225
  9. POLARAMINE [Concomitant]
     Active Substance: DEXCHLORPHENIRAMINE MALEATE
     Dosage: 5 MILLIGRAM
     Route: 041
     Dates: start: 20200408, end: 20200408
  10. PYRIDOXAL [PYRIDOXAL PHOSPHATE] [Concomitant]
     Dosage: 20 MG, TID, AFTER BREAKFAST, LUNCH, AND DINNER
     Route: 048
     Dates: start: 20200212, end: 20200303
  11. REBAMIPIDE [Concomitant]
     Active Substance: REBAMIPIDE
     Dosage: 100 MG, TID, AFTER BREAKFAST, LUNCH, AND DINNER
     Route: 048
     Dates: start: 20200212, end: 20200303
  12. ISOTONIC SODIUM CHLORIDE SOLUTION [Concomitant]
     Active Substance: SODIUM CHLORIDE
     Dosage: 150 MILLILITER
     Route: 041
     Dates: start: 20191225, end: 20191225
  13. WATER FOR INJECTION [Concomitant]
     Active Substance: WATER
     Dosage: 40 MILLILITER
     Route: 041
     Dates: start: 20200212, end: 20200212
  14. TRASTUZUMAB. [Concomitant]
     Active Substance: TRASTUZUMAB
     Dosage: 556 MILLIGRAM
     Route: 041
     Dates: start: 20200311, end: 20200311
  15. DEXART [Concomitant]
     Active Substance: DEXAMETHASONE SODIUM PHOSPHATE
     Dosage: 6.6 MILLIGRAM
     Route: 041
     Dates: start: 20200115, end: 20200115
  16. MIYA-BM [Concomitant]
     Active Substance: CLOSTRIDIUM BUTYRICUM SPORES STRAIN M-55
     Indication: PRODUCT USED FOR UNKNOWN INDICATION
     Dosage: 1 G, TID, AFTER BREAKFAST, LUNCH, AND DINNER
     Route: 048
     Dates: start: 20191206, end: 20191212
  17. REBAMIPIDE [Concomitant]
     Active Substance: REBAMIPIDE
     Indication: PRODUCT USED FOR UNKNOWN INDICATION
     Dosage: 100 MG, TID, AFTER BREAKFAST, LUNCH, AND DINNER
     Route: 048
     Dates: start: 20191225, end: 20200204
  18. DECADRON [Concomitant]
     Active Substance: DEXAMETHASONE
     Indication: PRODUCT USED FOR UNKNOWN INDICATION
     Dosage: 4 MG, BID, AFTER BREAKFAST AND LUNCH
     Route: 048
     Dates: start: 20191225, end: 20191228
  19. DECADRON [Concomitant]
     Active Substance: DEXAMETHASONE
     Dosage: 4 MG, BID, AFTER BREAKFAST AND LUNCH
     Route: 048
     Dates: start: 20200408, end: 20200411
  20. ISOTONIC SODIUM CHLORIDE SOLUTION [Concomitant]
     Active Substance: SODIUM CHLORIDE
     Dosage: 650 MILLILITER
     Route: 041
     Dates: start: 20200212, end: 20200212
  21. ISOTONIC SODIUM CHLORIDE SOLUTION [Concomitant]
     Active Substance: SODIUM CHLORIDE
     Dosage: 650 MILLILITER
     Route: 041
     Dates: start: 20200513, end: 20200513
  22. GLUCOSE [Concomitant]
     Active Substance: DEXTROSE
     Indication: PRODUCT USED FOR UNKNOWN INDICATION
     Dosage: 250 MILLILITER
     Route: 041
     Dates: start: 20191225, end: 20191225
  23. DOCETAXEL. [Suspect]
     Active Substance: DOCETAXEL
     Dosage: 120 MILLIGRAM
     Route: 041
     Dates: start: 20200408, end: 20200408
  24. DOCETAXEL. [Suspect]
     Active Substance: DOCETAXEL
     Dosage: 120 MILLIGRAM
     Route: 041
     Dates: start: 20200513, end: 20200513
  25. PERJETA [Concomitant]
     Active Substance: PERTUZUMAB
     Dosage: 420 MILLIGRAM
     Route: 041
     Dates: start: 20200408, end: 20200408
  26. DEXART [Concomitant]
     Active Substance: DEXAMETHASONE SODIUM PHOSPHATE
     Dosage: 6.6 MILLIGRAM
     Route: 041
     Dates: start: 20200212, end: 20200212
  27. MIYA-BM [Concomitant]
     Active Substance: CLOSTRIDIUM BUTYRICUM SPORES STRAIN M-55
     Dosage: 1 G, TID, AFTER BREAKFAST, LUNCH, AND DINNER
     Route: 048
     Dates: start: 20200220, end: 20200226
  28. PYRIDOXAL [PYRIDOXAL PHOSPHATE] [Concomitant]
     Indication: PRODUCT USED FOR UNKNOWN INDICATION
     Dosage: 20 MG, TID, AFTER BREAKFAST, LUNCH, AND DINNER
     Route: 048
     Dates: start: 20191225, end: 20200204
  29. DECADRON [Concomitant]
     Active Substance: DEXAMETHASONE
     Dosage: 4 MG, BID, AFTER BREAKFAST AND LUNCH
     Route: 048
     Dates: start: 20200311, end: 20200314
  30. DECADRON [Concomitant]
     Active Substance: DEXAMETHASONE
     Dosage: 4 MG, BID, AFTER BREAKFAST AND LUNCH
     Route: 048
     Dates: start: 20200513, end: 20200515
  31. ISOTONIC SODIUM CHLORIDE SOLUTION [Concomitant]
     Active Substance: SODIUM CHLORIDE
     Dosage: 650 MILLILITER
     Route: 041
     Dates: start: 20200311, end: 20200311
  32. WATER FOR INJECTION [Concomitant]
     Active Substance: WATER
     Dosage: 40 MILLILITER
     Route: 041
     Dates: start: 20200115, end: 20200115
  33. DOCETAXEL. [Suspect]
     Active Substance: DOCETAXEL
     Dosage: 120 MILLIGRAM
     Route: 041
     Dates: start: 20200115, end: 20200115
  34. PERJETA [Concomitant]
     Active Substance: PERTUZUMAB
     Dosage: 420 MILLIGRAM
     Route: 041
     Dates: start: 20200513, end: 20200513
  35. POLARAMINE [Concomitant]
     Active Substance: DEXCHLORPHENIRAMINE MALEATE
     Dosage: 5 MILLIGRAM
     Route: 041
     Dates: start: 20200115, end: 20200115
  36. DEXART [Concomitant]
     Active Substance: DEXAMETHASONE SODIUM PHOSPHATE
     Dosage: 6.6 MILLIGRAM
     Route: 041
     Dates: start: 20200311, end: 20200311
  37. WATER FOR INJECTION [Concomitant]
     Active Substance: WATER
     Dosage: 40 MILLILITER
     Route: 041
     Dates: start: 20200408, end: 20200408
  38. G-LASTA [Suspect]
     Active Substance: PEGFILGRASTIM
     Indication: COLONY STIMULATING FACTOR THERAPY
     Dosage: 3.6 MILLIGRAM
     Route: 058
     Dates: start: 20200515, end: 20200515
  39. TRASTUZUMAB. [Concomitant]
     Active Substance: TRASTUZUMAB
     Indication: BREAST CANCER FEMALE
     Dosage: 720 MILLIGRAM
     Route: 041
     Dates: start: 20191206, end: 20191206
  40. POLARAMINE [Concomitant]
     Active Substance: DEXCHLORPHENIRAMINE MALEATE
     Dosage: 5 MILLIGRAM
     Route: 041
     Dates: start: 20200311, end: 20200311
  41. MIYA-BM [Concomitant]
     Active Substance: CLOSTRIDIUM BUTYRICUM SPORES STRAIN M-55
     Dosage: 1 G, TID, AFTER BREAKFAST, LUNCH, AND DINNER
     Route: 048
     Dates: start: 20200321, end: 20200531
  42. REBAMIPIDE [Concomitant]
     Active Substance: REBAMIPIDE
     Dosage: 100 MG, TID, AFTER BREAKFAST, LUNCH, AND DINNER
     Route: 048
     Dates: start: 20200311, end: 20200531
  43. DECADRON [Concomitant]
     Active Substance: DEXAMETHASONE
     Dosage: 4 MG, BID, AFTER BREAKFAST AND LUNCH
     Route: 048
     Dates: start: 20200115, end: 20200118
  44. ISOTONIC SODIUM CHLORIDE SOLUTION [Concomitant]
     Active Substance: SODIUM CHLORIDE
     Indication: PRODUCT USED FOR UNKNOWN INDICATION
     Dosage: 600 MILLILITER
     Route: 041
     Dates: start: 20191206, end: 20191206
  45. WATER FOR INJECTION [Concomitant]
     Active Substance: WATER
     Indication: PRODUCT USED FOR UNKNOWN INDICATION
     Dosage: 40 MILLILITER
     Route: 041
     Dates: start: 20191206, end: 20191206
  46. GLUCOSE [Concomitant]
     Active Substance: DEXTROSE
     Dosage: 250 MILLILITER
     Route: 041
     Dates: start: 20200115, end: 20200115
  47. GLUCOSE [Concomitant]
     Active Substance: DEXTROSE
     Dosage: 250 MILLILITER
     Route: 041
     Dates: start: 20200513, end: 20200513
  48. DEXART [Concomitant]
     Active Substance: DEXAMETHASONE SODIUM PHOSPHATE
     Indication: PRODUCT USED FOR UNKNOWN INDICATION
     Dosage: 6.6 MG
     Route: 041
     Dates: start: 20191225, end: 20191225
  49. DECADRON [Concomitant]
     Active Substance: DEXAMETHASONE
     Dosage: 4 MG, BID, AFTER BREAKFAST AND LUNCH
     Route: 048
     Dates: start: 20200104, end: 20200104
  50. TRASTUZUMAB. [Concomitant]
     Active Substance: TRASTUZUMAB
     Dosage: 556 MILLIGRAM
     Route: 041
     Dates: start: 20200212, end: 20200212
  51. PERJETA [Concomitant]
     Active Substance: PERTUZUMAB
     Dosage: 420 MILLIGRAM
     Route: 041
     Dates: start: 20200212, end: 20200212
  52. POLARAMINE [Concomitant]
     Active Substance: DEXCHLORPHENIRAMINE MALEATE
     Dosage: 5 MILLIGRAM
     Route: 041
     Dates: start: 20200212, end: 20200212
  53. POLARAMINE [Concomitant]
     Active Substance: DEXCHLORPHENIRAMINE MALEATE
     Dosage: 5 MILLIGRAM
     Route: 041
     Dates: start: 20200513, end: 20200513
  54. DEXART [Concomitant]
     Active Substance: DEXAMETHASONE SODIUM PHOSPHATE
     Dosage: 6.6 MILLIGRAM
     Route: 041
     Dates: start: 20200408, end: 20200408
  55. DECADRON [Concomitant]
     Active Substance: DEXAMETHASONE
     Dosage: 4 MG, BID, AFTER BREAKFAST AND LUNCH
     Route: 048
     Dates: start: 20200212, end: 20200215
  56. ISOTONIC SODIUM CHLORIDE SOLUTION [Concomitant]
     Active Substance: SODIUM CHLORIDE
     Dosage: 650 MILLILITER
     Route: 041
     Dates: start: 20200115, end: 20200115
  57. ISOTONIC SODIUM CHLORIDE SOLUTION [Concomitant]
     Active Substance: SODIUM CHLORIDE
     Dosage: 650 MILLILITER
     Route: 041
     Dates: start: 20200408, end: 20200408
  58. WATER FOR INJECTION [Concomitant]
     Active Substance: WATER
     Dosage: 40 MILLILITER
     Route: 041
     Dates: start: 20200513, end: 20200513
  59. GLUCOSE [Concomitant]
     Active Substance: DEXTROSE
     Dosage: 250 MILLILITER
     Route: 041
     Dates: start: 20200212, end: 20200212
  60. GLUCOSE [Concomitant]
     Active Substance: DEXTROSE
     Dosage: 250 MILLILITER
     Route: 041
     Dates: start: 20200311, end: 20200311
  61. GLUCOSE [Concomitant]
     Active Substance: DEXTROSE
     Dosage: 250 MILLILITER
     Route: 041
     Dates: start: 20200408, end: 20200408
  62. TRASTUZUMAB. [Concomitant]
     Active Substance: TRASTUZUMAB
     Dosage: 556 MILLIGRAM
     Route: 041
     Dates: start: 20200408, end: 20200408
  63. PERJETA [Concomitant]
     Active Substance: PERTUZUMAB
     Indication: BREAST CANCER FEMALE
     Dosage: 840 MILLIGRAM
     Route: 041
     Dates: start: 20191206, end: 20191206
  64. DEXART [Concomitant]
     Active Substance: DEXAMETHASONE SODIUM PHOSPHATE
     Dosage: 6.6 MILLIGRAM
     Route: 041
     Dates: start: 20200513, end: 20200513
  65. PYRIDOXAL [PYRIDOXAL PHOSPHATE] [Concomitant]
     Dosage: 20 MG, TID, AFTER BREAKFAST, LUNCH, AND DINNER
     Route: 048
     Dates: start: 20200311, end: 20200531
  66. WATER FOR INJECTION [Concomitant]
     Active Substance: WATER
     Dosage: 40 MILLILITER
     Route: 041
     Dates: start: 20200311, end: 20200311

REACTIONS (1)
  - Pneumonia [Recovering/Resolving]

NARRATIVE: CASE EVENT DATE: 20200610
